FAERS Safety Report 12725445 (Version 1)
Quarter: 2016Q3

REPORT INFORMATION
  Report Type: Spontaneous
  Country: JP (occurrence: JP)
  Receive Date: 20160908
  Receipt Date: 20160908
  Transmission Date: 20161109
  Serious: Yes (Life-Threatening, Hospitalization, Other)
  Sender: FDA-Public Use
  Company Number: JP-BRISTOL-MYERS SQUIBB COMPANY-BMS-2016-065836

PATIENT
  Age: 71 Year
  Sex: Male

DRUGS (7)
  1. OPDIVO [Suspect]
     Active Substance: NIVOLUMAB
     Indication: NON-SMALL CELL LUNG CANCER
     Dosage: 220 MG, UNK
     Route: 041
     Dates: start: 20160603, end: 20160603
  2. OPDIVO [Suspect]
     Active Substance: NIVOLUMAB
     Dosage: 220 MG, UNK
     Route: 041
     Dates: start: 20160621, end: 20160621
  3. LOXOPROFEN [Concomitant]
     Active Substance: LOXOPROFEN
     Indication: PRODUCT USED FOR UNKNOWN INDICATION
     Dosage: UNK
     Route: 065
     Dates: start: 20160531, end: 20160705
  4. LANSOPRAZOLE. [Concomitant]
     Active Substance: LANSOPRAZOLE
     Indication: PRODUCT USED FOR UNKNOWN INDICATION
     Dosage: UNK
     Route: 065
     Dates: start: 20160601, end: 20160705
  5. REBAMIPIDE [Concomitant]
     Active Substance: REBAMIPIDE
     Indication: PRODUCT USED FOR UNKNOWN INDICATION
     Dosage: UNK
     Route: 065
     Dates: start: 20160531, end: 20160705
  6. PRIMPERAN [Concomitant]
     Active Substance: METOCLOPRAMIDE HYDROCHLORIDE
     Indication: PRODUCT USED FOR UNKNOWN INDICATION
     Dosage: UNK
     Route: 065
     Dates: start: 20160507, end: 20160705
  7. AZILVA [Concomitant]
     Active Substance: AZILSARTAN KAMEDOXOMIL
     Indication: PRODUCT USED FOR UNKNOWN INDICATION
     Dosage: UNK
     Route: 065
     Dates: start: 20160426, end: 20160705

REACTIONS (7)
  - Off label use [Unknown]
  - Decreased appetite [Unknown]
  - Atrial fibrillation [Recovering/Resolving]
  - Acute kidney injury [Recovered/Resolved]
  - Cardiogenic shock [Unknown]
  - Dialysis [Unknown]
  - Myocarditis [Recovering/Resolving]

NARRATIVE: CASE EVENT DATE: 20160628
